FAERS Safety Report 7226955-8 (Version None)
Quarter: 2011Q1

REPORT INFORMATION
  Report Type: 
  Country: None (occurrence: None)
  Receive Date: 20110114
  Receipt Date: 20101227
  Transmission Date: 20110831
  Serious: Yes (Life-Threatening)
  Sender: FDA-Public Use
  Company Number: JP-AMGEN-JPNCT2011001534

PATIENT

DRUGS (14)
  1. DUROTEP MT PATCH [Concomitant]
     Dosage: UNK
     Route: 062
  2. SOLDEM 3A [Concomitant]
     Dosage: UNK
     Route: 042
  3. PANITUMUMAB [Suspect]
     Indication: COLORECTAL CANCER
     Dosage: 6 MG/KG, Q2WK
     Route: 041
     Dates: start: 20100901, end: 20101013
  4. MORPHINE HYDROCHLORIDE [Concomitant]
     Dosage: UNK
     Route: 042
  5. ZOSYN [Concomitant]
     Dosage: UNK
     Route: 042
  6. ENSURE [Concomitant]
     Dosage: UNK
     Route: 048
  7. HIRUDOID SOFT [Concomitant]
     Dosage: UNK
     Route: 062
  8. MINOMYCIN [Concomitant]
     Dosage: UNK
     Route: 048
  9. DIPROLENE [Concomitant]
     Dosage: UNK
     Route: 062
  10. MYSER [Concomitant]
     Dosage: UNK
     Route: 062
  11. LOCOID [Concomitant]
     Dosage: UNK
     Route: 062
  12. KERATINAMIN [Concomitant]
     Dosage: UNK
     Route: 062
  13. LANSOPRAZOLE [Concomitant]
     Dosage: UNK
     Route: 048
  14. NEOPAREN 2 [Concomitant]
     Dosage: UNK
     Route: 042

REACTIONS (4)
  - DERMATITIS ACNEIFORM [None]
  - DRY SKIN [None]
  - ILEAL FISTULA [None]
  - ILEAL PERFORATION [None]
